FAERS Safety Report 12390988 (Version 1)
Quarter: 2016Q2

REPORT INFORMATION
  Report Type: Report from Study
  Country: US (occurrence: US)
  Receive Date: 20160520
  Receipt Date: 20160520
  Transmission Date: 20160815
  Serious: Yes (Other)
  Sender: FDA-Public Use
  Company Number: US-MDT-ADR-2015-02325

PATIENT
  Age: 61 Year
  Sex: Male

DRUGS (20)
  1. CLONIDINE. [Suspect]
     Active Substance: CLONIDINE
     Dosage: 113.47MCG/DAY
     Route: 037
     Dates: start: 20150813
  2. BUPIVACAINE. [Suspect]
     Active Substance: BUPIVACAINE
     Dosage: 10.997MG/DAY
     Route: 037
  3. DILAUDID [Suspect]
     Active Substance: HYDROMORPHONE HYDROCHLORIDE
     Dosage: 0.5498MG/DAY
     Route: 037
  4. CLONIDINE. [Suspect]
     Active Substance: CLONIDINE
     Dosage: 133.61MCG/DAY
     Route: 037
     Dates: start: 20151125
  5. DILAUDID [Suspect]
     Active Substance: HYDROMORPHONE HYDROCHLORIDE
     Dosage: 0.7007MG/DAY
     Route: 037
     Dates: start: 20150630
  6. BUPIVACAINE. [Suspect]
     Active Substance: BUPIVACAINE
     Dosage: 5.018 MG/DAY
     Route: 037
     Dates: start: 20151125
  7. BUPIVACAINE. [Suspect]
     Active Substance: BUPIVACAINE
     Dosage: 20.041MG/DAY
     Route: 037
     Dates: start: 20150924
  8. CLONIDINE. [Suspect]
     Active Substance: CLONIDINE
     Dosage: 73.31MCG/DAY
     Route: 037
  9. BUPIVACAINE. [Suspect]
     Active Substance: BUPIVACAINE
     Dosage: 14.015MG/DAY
     Route: 037
     Dates: start: 20150630
  10. CLONIDINE. [Suspect]
     Active Substance: CLONIDINE
     Dosage: 100.12 MCG/DAY
     Route: 037
     Dates: start: 20151125
  11. CLONIDINE. [Suspect]
     Active Substance: CLONIDINE
     Dosage: 93.43MCG/DAY
     Route: 037
     Dates: start: 20150630
  12. BUPIVACAINE. [Suspect]
     Active Substance: BUPIVACAINE
     Dosage: 17.021MG/DAY
     Route: 037
     Dates: start: 20150813
  13. COMPOUNDED BACLOFEN [Suspect]
     Active Substance: BACLOFEN
     Dosage: 140.15MCG/DAY
     Route: 037
     Dates: start: 20150630
  14. COMPOUNDED BACLOFEN [Suspect]
     Active Substance: BACLOFEN
     Dosage: 170.21MCG/DAY
     Route: 037
     Dates: start: 20150813
  15. COMPOUNDED BACLOFEN [Suspect]
     Active Substance: BACLOFEN
     Dosage: 150.18 MCG/DAY
     Route: 037
     Dates: start: 20151125
  16. COMPOUNDED BACLOFEN [Suspect]
     Active Substance: BACLOFEN
     Dosage: 200.41MCG/DAY
     Route: 037
     Dates: start: 20150924
  17. DILAUDID [Suspect]
     Active Substance: HYDROMORPHONE HYDROCHLORIDE
     Dosage: 0.8510MG/DAY
     Route: 037
     Dates: start: 20150813
  18. DILAUDID [Suspect]
     Active Substance: HYDROMORPHONE HYDROCHLORIDE
     Dosage: 1.0021MG/DAY
     Route: 037
     Dates: start: 20150924
  19. COMPOUNDED BACLOFEN [Suspect]
     Active Substance: BACLOFEN
     Dosage: 109.97MCG/DAY
     Route: 037
  20. DILAUDID [Suspect]
     Active Substance: HYDROMORPHONE HYDROCHLORIDE
     Dosage: 0.7509 MG/DAY
     Route: 037
     Dates: start: 20151125

REACTIONS (6)
  - Vomiting [Unknown]
  - Infusion site mass [Recovered/Resolved]
  - Nausea [Unknown]
  - Pain [Unknown]
  - Radicular pain [Unknown]
  - Therapeutic response decreased [Recovered/Resolved]

NARRATIVE: CASE EVENT DATE: 20150617
